FAERS Safety Report 14435825 (Version 1)
Quarter: 2018Q1

REPORT INFORMATION
  Report Type: Spontaneous
  Country: US (occurrence: US)
  Receive Date: 20180124
  Receipt Date: 20180124
  Transmission Date: 20180509
  Serious: Yes (Disabling)
  Sender: FDA-Public Use
  Company Number: None

PATIENT
  Age: 17 Year
  Sex: Female
  Weight: 49.05 kg

DRUGS (10)
  1. STOOL SOFTENER (DOCUSATE) [Concomitant]
     Active Substance: DOCUSATE
  2. DEPO-PROVERA [Concomitant]
     Active Substance: MEDROXYPROGESTERONE ACETATE
  3. MAGNESIUM [Concomitant]
     Active Substance: MAGNESIUM
  4. ZOLOFT [Concomitant]
     Active Substance: SERTRALINE HYDROCHLORIDE
  5. EFFECTOR [Concomitant]
  6. WOMEN^S ONCE A DAY VITAMIN [Concomitant]
  7. FIBER [Concomitant]
     Active Substance: PSYLLIUM HUSK
  8. LUPRON [Suspect]
     Active Substance: LEUPROLIDE ACETATE
     Indication: ENDOMETRIOSIS
     Dosage: ?          OTHER FREQUENCY:MONTHLY;?
     Route: 058
  9. VITAMIN B12 [Concomitant]
     Active Substance: CYANOCOBALAMIN
  10. VITAMIN D [Concomitant]
     Active Substance: CHOLECALCIFEROL

REACTIONS (20)
  - Educational problem [None]
  - Migraine [None]
  - Hypotension [None]
  - Chills [None]
  - Pain [None]
  - Vomiting [None]
  - Malaise [None]
  - Hyperhidrosis [None]
  - Loss of employment [None]
  - Nightmare [None]
  - Insomnia [None]
  - Fatigue [None]
  - Arthralgia [None]
  - Haemorrhage [None]
  - Back pain [None]
  - Disturbance in attention [None]
  - Myalgia [None]
  - Dizziness [None]
  - Urinary incontinence [None]
  - Amnesia [None]

NARRATIVE: CASE EVENT DATE: 20171125
